FAERS Safety Report 8100035-1 (Version None)
Quarter: 2012Q1

REPORT INFORMATION
  Report Type: 
  Country: None (occurrence: None)
  Receive Date: 20120129
  Receipt Date: 20111102
  Transmission Date: 20120608
  Serious: No
  Sender: FDA-Public Use
  Company Number: US-ABBOTT-11P-163-0870871-00

PATIENT
  Age: 52 Year
  Sex: Female

DRUGS (4)
  1. IMURAN [Concomitant]
     Indication: PRODUCT USED FOR UNKNOWN INDICATION
     Dosage: DAILY FOR 1.5 YEARS
  2. HUMIRA [Suspect]
     Indication: CROHN'S DISEASE
     Dosage: 160MG DAY 1, 80MG DAY 15, THEN 40MG EOW
     Dates: start: 20111020
  3. URSODIOL [Concomitant]
     Indication: HEPATIC ENZYME INCREASED
     Dosage: DAILY
  4. PROMETHAZINE [Concomitant]
     Indication: NAUSEA
     Dosage: FOR 1.5 YEARS

REACTIONS (1)
  - FATIGUE [None]
